FAERS Safety Report 9166725 (Version 2)
Quarter: 2013Q2

REPORT INFORMATION
  Report Type: Spontaneous
  Country: US (occurrence: US)
  Receive Date: 20130315
  Receipt Date: 20130429
  Transmission Date: 20140414
  Serious: No
  Sender: FDA-Public Use
  Company Number: US-RB-051026-13

PATIENT
  Age: 37 Year
  Sex: Female

DRUGS (2)
  1. SUBUTEX [Suspect]
     Indication: DRUG ABUSE
     Dosage: UNKNOWN DOSING DETAILS
     Route: 065
  2. SUBOXONE FILM [Suspect]
     Indication: PRODUCT USED FOR UNKNOWN INDICATION
     Dosage: SUBOXONE FILM
     Route: 065

REACTIONS (1)
  - No adverse event [Recovered/Resolved]
